FAERS Safety Report 7978360-4 (Version None)
Quarter: 2011Q4

REPORT INFORMATION
  Report Type: 
  Country: None (occurrence: None)
  Receive Date: 20111214
  Receipt Date: 20111209
  Transmission Date: 20120403
  Serious: Yes (Other)
  Sender: FDA-Public Use
  Company Number: JP-PFIZER INC-2011286988

PATIENT
  Age: 44 Year
  Sex: Male

DRUGS (6)
  1. ALANTA SF [Concomitant]
     Indication: PROPHYLAXIS
     Dosage: 100 MG, 3X/DAY
     Route: 048
     Dates: start: 20110719, end: 20110916
  2. LOXONIN [Concomitant]
     Indication: CERVICOBRACHIAL SYNDROME
     Dosage: 60 MG, 3X/DAY
     Route: 048
     Dates: start: 20110719
  3. LANSOPRAZOLE [Concomitant]
     Indication: GASTROOESOPHAGEAL REFLUX DISEASE
     Dosage: 15 MG, 1X/DAY
     Route: 048
     Dates: start: 20111013
  4. VARENICLINE TARTRATE [Suspect]
     Indication: SMOKING CESSATION THERAPY
     Dosage: 2 MG/DAY
     Route: 048
     Dates: start: 20111110, end: 20111118
  5. GIBONZ [Concomitant]
     Indication: HYPOTONIA
     Dosage: 1 MG, 3X/DAY
     Route: 048
     Dates: start: 20110719, end: 20110916
  6. PALGIN [Concomitant]
     Indication: SPINAL OSTEOARTHRITIS
     Dosage: 0.5 MG, 1X/DAY
     Route: 048
     Dates: start: 20110719

REACTIONS (4)
  - AGITATION [None]
  - IRRITABILITY [None]
  - ABNORMAL BEHAVIOUR [None]
  - DEPRESSION [None]
